FAERS Safety Report 4345695-6 (Version None)
Quarter: 2004Q2

REPORT INFORMATION
  Report Type: 
  Country: None (occurrence: None)
  Receive Date: 20040421
  Receipt Date: 20040408
  Transmission Date: 20050107
  Serious: Yes (Other)
  Sender: FDA-Public Use
  Company Number: 2004024848

PATIENT
  Sex: Male
  Weight: 83.9154 kg

DRUGS (3)
  1. ZOLOFT [Suspect]
     Indication: DEPRESSION
  2. NORVASC [Suspect]
     Indication: BLOOD PRESSURE INCREASED
     Dates: start: 20020101
  3. CELECOXIB (CELECOXIB) [Suspect]
     Indication: OSTEOARTHRITIS

REACTIONS (5)
  - ARTERIAL OCCLUSIVE DISEASE [None]
  - HYPERTENSION [None]
  - MYOCARDIAL INFARCTION [None]
  - OSTEOARTHRITIS [None]
  - PNEUMONIA MYCOPLASMAL [None]
